FAERS Safety Report 6897363-4 (Version None)
Quarter: 2010Q3

REPORT INFORMATION
  Report Type: 
  Country: None (occurrence: None)
  Receive Date: 20100802
  Receipt Date: 20070514
  Transmission Date: 20110219
  Serious: No
  Sender: FDA-Public Use
  Company Number: US-PFIZER INC-2007038212

PATIENT
  Sex: Female
  Weight: 154.2 kg

DRUGS (12)
  1. LYRICA [Suspect]
     Indication: DIABETIC NEUROPATHY
     Dates: start: 20070401
  2. ACETYLSALICYLIC ACID SRT [Concomitant]
  3. PRINIVIL [Concomitant]
  4. LOPRESSOR [Concomitant]
  5. LIPITOR [Concomitant]
  6. COUMADIN [Concomitant]
  7. LASIX [Concomitant]
  8. DAYPRO [Concomitant]
  9. LOVAZA [Concomitant]
  10. VITAMIN E [Concomitant]
  11. ASCORBIC ACID [Concomitant]
  12. FOLIC ACID [Concomitant]

REACTIONS (2)
  - CONTUSION [None]
  - DRUG INEFFECTIVE [None]
